FAERS Safety Report 5631497-7 (Version None)
Quarter: 2008Q1

REPORT INFORMATION
  Report Type: 
  Country: None (occurrence: None)
  Receive Date: 20080215
  Receipt Date: 20080205
  Transmission Date: 20080703
  Serious: No
  Sender: FDA-Public Use
  Company Number: C-08-0002

PATIENT
  Age: 60 Year
  Sex: Female
  Weight: 52.1637 kg

DRUGS (2)
  1. LIDOCAINE HCL FOR ORAL TOPICAL SOLUTION USP 2% (VISCOUS) [Suspect]
     Indication: DYSKINESIA OESOPHAGEAL
     Dosage: 1TBSP/4HRS BY MOUTH
     Dates: start: 20080126, end: 20080129
  2. PRILOSEC [Concomitant]

REACTIONS (2)
  - DRUG INEFFECTIVE [None]
  - PHARMACEUTICAL PRODUCT COMPLAINT [None]
